FAERS Safety Report 6743494-9 (Version None)
Quarter: 2010Q2

REPORT INFORMATION
  Report Type: 
  Country: None (occurrence: None)
  Receive Date: 20100527
  Receipt Date: 20100520
  Transmission Date: 20101027
  Serious: Yes (Death, Hospitalization)
  Sender: FDA-Public Use
  Company Number: ES-CELGENEUS-144-50794-10051816

PATIENT

DRUGS (1)
  1. VIDAZA [Suspect]
     Indication: MYELODYSPLASTIC SYNDROME
     Route: 050

REACTIONS (4)
  - ACUTE MYELOID LEUKAEMIA [None]
  - INFECTION [None]
  - NEUTROPENIA [None]
  - THROMBOCYTOPENIA [None]
